FAERS Safety Report 10163227 (Version 1)
Quarter: 2014Q2

REPORT INFORMATION
  Report Type: Spontaneous
  Country: US (occurrence: US)
  Receive Date: 20140509
  Receipt Date: 20140509
  Transmission Date: 20141212
  Serious: Yes (Hospitalization)
  Sender: FDA-Public Use
  Company Number: US-LUNDBECK-DKLU1099765

PATIENT
  Age: 11 Month
  Sex: Male

DRUGS (3)
  1. SABRIL (FOR ORAL SOLUTION) [Suspect]
     Indication: INFANTILE SPASMS
     Dates: start: 20131029
  2. SABRIL (FOR ORAL SOLUTION) [Suspect]
     Indication: TUBEROUS SCLEROSIS
  3. ACTH [Concomitant]
     Indication: PRODUCT USED FOR UNKNOWN INDICATION

REACTIONS (3)
  - Unresponsive to stimuli [Unknown]
  - Convulsion [Unknown]
  - Pyrexia [Unknown]
